FAERS Safety Report 6705007-7 (Version None)
Quarter: 2010Q2

REPORT INFORMATION
  Report Type: 
  Country: None (occurrence: None)
  Receive Date: 20100430
  Receipt Date: 20100421
  Transmission Date: 20101027
  Serious: Yes (Other)
  Sender: FDA-Public Use
  Company Number: A0857290A

PATIENT
  Age: 45 Year
  Sex: Male

DRUGS (5)
  1. LAMOTRIGINE [Suspect]
     Dosage: 150MG PER DAY
     Route: 048
  2. LAMICTAL [Suspect]
     Dosage: 300MG TWICE PER DAY
     Route: 048
  3. MONOSODIUM GLUTAMATE [Suspect]
  4. ADDITIVES (UNSPECIFIED) [Suspect]
  5. NITRATES (UNSPECIFIED) [Suspect]

REACTIONS (5)
  - AMNESIA [None]
  - CONVULSION [None]
  - FEELING ABNORMAL [None]
  - FLIGHT OF IDEAS [None]
  - GASTRIC DISORDER [None]
